FAERS Safety Report 11350386 (Version 4)
Quarter: 2015Q4

REPORT INFORMATION
  Report Type: Report from Study
  Country: GB (occurrence: GB)
  Receive Date: 20150807
  Receipt Date: 20151201
  Transmission Date: 20160304
  Serious: Yes (Hospitalization)
  Sender: FDA-Public Use
  Company Number: GB-BAYER-2015-389500

PATIENT
  Age: 66 Year
  Sex: Male
  Weight: 63.95 kg

DRUGS (10)
  1. OXYCODONE [Concomitant]
     Active Substance: OXYCODONE
     Dosage: 10 MG
     Dates: start: 20150330
  2. RADIUM-223 [Suspect]
     Active Substance: RADIUM RA-223 DICHLORIDE
     Indication: METASTASES TO BONE
     Dosage: 3100 KBQ
     Dates: start: 20150805, end: 20150805
  3. OXYCODONE [Concomitant]
     Active Substance: OXYCODONE
     Dosage: 30 MG/DAILY
     Dates: start: 20150921
  4. METOCLOPRAMIDE. [Concomitant]
     Active Substance: METOCLOPRAMIDE
     Dosage: 10 MG
     Dates: start: 20150421
  5. RADIUM-223 [Suspect]
     Active Substance: RADIUM RA-223 DICHLORIDE
     Indication: PROSTATE CANCER STAGE IV
     Dosage: 3190 KBQ
     Dates: start: 20150708, end: 20150708
  6. RADIUM-223 [Suspect]
     Active Substance: RADIUM RA-223 DICHLORIDE
     Indication: PROSTATE CANCER STAGE IV
     Dosage: 3100 KBQ
     Dates: start: 20150902, end: 20150902
  7. RADIUM-223 [Suspect]
     Active Substance: RADIUM RA-223 DICHLORIDE
     Indication: PROSTATE CANCER STAGE IV
     Dosage: 3000 KBQ
     Dates: start: 20150930, end: 20150930
  8. DULCOLAX (BISACODYL) [Concomitant]
     Active Substance: BISACODYL
     Dosage: 10 MG, QD
     Dates: start: 20150921
  9. TINZAPARIN [Concomitant]
     Active Substance: TINZAPARIN
     Dosage: 11000 U, QD
     Dates: start: 20150421
  10. PARACETAMOL [Concomitant]
     Active Substance: ACETAMINOPHEN
     Dosage: 2 DF, PRN
     Dates: start: 20150330

REACTIONS (3)
  - Back pain [Recovered/Resolved]
  - Disease progression [Recovered/Resolved]
  - Abdominal pain upper [Recovered/Resolved]

NARRATIVE: CASE EVENT DATE: 20150709
